FAERS Safety Report 5369011-6 (Version None)
Quarter: 2007Q2

REPORT INFORMATION
  Report Type: 
  Country: None (occurrence: None)
  Receive Date: 20070625
  Receipt Date: 20070219
  Transmission Date: 20071010
  Serious: No
  Sender: FDA-Public Use
  Company Number: US-ASTRAZENECA-2006UW24236

PATIENT
  Age: 50 Year
  Sex: Female
  Weight: 90.7 kg

DRUGS (8)
  1. CRESTOR [Suspect]
     Indication: BLOOD CHOLESTEROL INCREASED
     Route: 048
     Dates: start: 20061110, end: 20061114
  2. ZELNORM [Concomitant]
     Indication: IRRITABLE BOWEL SYNDROME
  3. SYNTHROID [Concomitant]
  4. ADVAIR DISKUS 100/50 [Concomitant]
     Dosage: 250-50
  5. VIVELLE [Concomitant]
  6. SYMAX [Concomitant]
  7. DUOTAB [Concomitant]
  8. ZYRTEC [Concomitant]

REACTIONS (3)
  - ABDOMINAL PAIN [None]
  - DIARRHOEA [None]
  - IRRITABLE BOWEL SYNDROME [None]
